FAERS Safety Report 8825680 (Version 1)
Quarter: 2012Q4

REPORT INFORMATION
  Report Type: 
  Country: US (occurrence: US)
  Receive Date: 20121004
  Receipt Date: 20121004
  Transmission Date: 20130627
  Serious: No
  Sender: FDA-Public Use
  Company Number: US-TEVA-362884USA

PATIENT
  Age: 23 Year
  Sex: Female
  Weight: 59.02 kg

DRUGS (3)
  1. PLAN B ONE-STEP [Suspect]
     Indication: POST COITAL CONTRACEPTION
     Dosage: 1.5 Milligram Daily;
     Route: 048
     Dates: start: 20120903, end: 20120903
  2. LOW-OGESTREL [Concomitant]
     Indication: MENSTRUAL CYCLE MANAGEMENT
  3. LOW-OGESTREL [Concomitant]
     Indication: CONTRACEPTION

REACTIONS (1)
  - Menstruation irregular [Recovered/Resolved]
